FAERS Safety Report 8720358 (Version 3)
Quarter: 2013Q4

REPORT INFORMATION
  Report Type: Report from Study
  Country: JP (occurrence: JP)
  Receive Date: 20120813
  Receipt Date: 20131101
  Transmission Date: 20140711
  Serious: Yes (Other)
  Sender: FDA-Public Use
  Company Number: JP-009507513-1208JPN004986

PATIENT
  Age: 30 Year
  Sex: Male
  Weight: 44 kg

DRUGS (8)
  1. PEGINTRON [Suspect]
     Indication: HEPATITIS C
     Dosage: 1.5 MICROGRAM PER KILOGRAM, QW
     Route: 058
     Dates: start: 20120515, end: 20120626
  2. PEGINTRON [Suspect]
     Dosage: 1.5 MICROGRAM PER KILOGRAM, QW
     Route: 058
     Dates: start: 20120807
  3. REBETOL [Suspect]
     Indication: HEPATITIS C
     Dosage: 600 MG, QD
     Route: 048
     Dates: start: 20120515, end: 20120528
  4. REBETOL [Suspect]
     Dosage: 400 MG, QD
     Route: 048
     Dates: start: 20120529, end: 20120604
  5. REBETOL [Suspect]
     Dosage: 200 MG, QD
     Route: 048
     Dates: start: 20120605, end: 20120703
  6. REBETOL [Suspect]
     Dosage: 200 MG, QD
     Route: 048
     Dates: start: 20120807
  7. TELAVIC [Suspect]
     Indication: HEPATITIS C
     Dosage: DOSE: 1500 MG
     Route: 048
     Dates: start: 20120515, end: 20120703
  8. SALOBEL [Concomitant]
     Dosage: FORMULATION: POR
     Route: 048
     Dates: start: 20120807

REACTIONS (1)
  - Pneumonia [Recovered/Resolved]
